FAERS Safety Report 9525190 (Version 1)
Quarter: 2013Q3

REPORT INFORMATION
  Report Type: Spontaneous
  Country: US (occurrence: US)
  Receive Date: 20130916
  Receipt Date: 20130916
  Transmission Date: 20140515
  Serious: No
  Sender: FDA-Public Use
  Company Number: US-BAYER-2013-109803

PATIENT
  Age: 44 Year
  Sex: Female

DRUGS (1)
  1. FINACEA [Suspect]
     Indication: ACNE
     Dosage: UNK
     Route: 061
     Dates: start: 20130909

REACTIONS (1)
  - Burning sensation [Recovered/Resolved]
